FAERS Safety Report 13272150 (Version 3)
Quarter: 2017Q1

REPORT INFORMATION
  Report Type: Spontaneous
  Country: US (occurrence: US)
  Receive Date: 20170227
  Receipt Date: 20170323
  Transmission Date: 20170428
  Serious: Yes (Hospitalization, Other)
  Sender: FDA-Public Use
  Company Number: US-UNITED THERAPEUTICS-UNT-2017-002419

PATIENT
  Age: 62 Year
  Sex: Female
  Weight: 117.91 kg

DRUGS (1)
  1. REMODULIN [Suspect]
     Active Substance: TREPROSTINIL
     Indication: PULMONARY ARTERIAL HYPERTENSION
     Dosage: 0.058 ?G/KG, CONTINUING
     Route: 041
     Dates: start: 20130812

REACTIONS (10)
  - Dialysis related complication [Unknown]
  - Device related infection [Unknown]
  - Device issue [Unknown]
  - Fluid overload [Unknown]
  - Catheter placement [Unknown]
  - Pyrexia [Unknown]
  - Hypotension [Unknown]
  - Chills [Unknown]
  - Diarrhoea [Unknown]
  - Vomiting [Unknown]

NARRATIVE: CASE EVENT DATE: 201702
